FAERS Safety Report 7898508 (Version 2)
Quarter: 2013Q3

REPORT INFORMATION
  Report Type: Spontaneous
  Country: US (occurrence: US)
  Receive Date: 20110414
  Receipt Date: 20130926
  Transmission Date: 20140515
  Serious: No
  Sender: FDA-Public Use
  Company Number: US-PFIZER INC-2011079727

PATIENT
  Age: 51 Year
  Sex: Male
  Weight: 77.1 kg

DRUGS (6)
  1. VIAGRA [Suspect]
     Indication: ERECTILE DYSFUNCTION
     Dosage: 100 MG, AS NEEDED
     Route: 048
     Dates: start: 20090531
  2. VIAGRA [Suspect]
     Indication: LIBIDO DECREASED
     Dosage: UNK, AS NEEDED
     Dates: start: 1999
  3. SIMVASTATIN [Concomitant]
     Indication: BLOOD CHOLESTEROL INCREASED
     Dosage: 20 MG, UNK
  4. QUINAPRIL [Concomitant]
     Indication: HYPERTENSION
     Dosage: 40 MG, UNK
  5. GLIPIZIDE [Concomitant]
     Indication: DIABETES MELLITUS
     Dosage: 2.5 MG, UNK
  6. METFORMIN [Concomitant]
     Indication: DIABETES MELLITUS
     Dosage: 1000 MG, UNK

REACTIONS (2)
  - Drug ineffective [Unknown]
  - Product taste abnormal [Unknown]
